FAERS Safety Report 7341132-8 (Version None)
Quarter: 2011Q1

REPORT INFORMATION
  Report Type: 
  Country: None (occurrence: None)
  Receive Date: 20110309
  Receipt Date: 20110301
  Transmission Date: 20110831
  Serious: Yes (Other)
  Sender: FDA-Public Use
  Company Number: A0916110A

PATIENT
  Age: 67 Year
  Sex: Female

DRUGS (4)
  1. ADVAIR DISKUS 100/50 [Suspect]
     Indication: ASTHMA
     Dosage: 1PUFF PER DAY
     Route: 055
     Dates: start: 20060901
  2. VASERETIC [Concomitant]
  3. OXYBUTYNIN [Concomitant]
  4. IBUPROFEN [Concomitant]

REACTIONS (3)
  - PRODUCT QUALITY ISSUE [None]
  - DYSPNOEA [None]
  - ASTHMA [None]
